FAERS Safety Report 8078736-3 (Version None)
Quarter: 2012Q1

REPORT INFORMATION
  Report Type: 
  Country: None (occurrence: None)
  Receive Date: 20120124
  Receipt Date: 20120113
  Transmission Date: 20120608
  Serious: Yes (Hospitalization)
  Sender: FDA-Public Use
  Company Number: KAD201201-000023

PATIENT
  Sex: Male
  Weight: 133.3575 kg

DRUGS (14)
  1. CITALOPRAM [Concomitant]
  2. AZITHROMYCIN [Concomitant]
  3. ALBUTEROL [Concomitant]
  4. METOPROLOL [Concomitant]
  5. NYQUIL [Concomitant]
  6. FAMOTIDINE [Concomitant]
  7. FLUTICASONE INHALER [Concomitant]
  8. GEODON [Concomitant]
  9. RANITIDINE [Concomitant]
  10. ASPIRIN [Concomitant]
  11. RIBAVIRIN [Suspect]
     Indication: HEPATITIS C
     Dosage: 400 MG TWO TIMES A DAY
  12. HYDRALAZINE HCL [Concomitant]
  13. PEGASYS [Suspect]
     Indication: HEPATITIS C
     Dosage: 180 MCG WEEKLY
  14. GABAPENTIN [Concomitant]

REACTIONS (2)
  - CHRONIC OBSTRUCTIVE PULMONARY DISEASE [None]
  - PNEUMONIA [None]
